FAERS Safety Report 17115665 (Version 1)
Quarter: 2019Q4

REPORT INFORMATION
  Report Type: Spontaneous
  Country: US (occurrence: US)
  Receive Date: 20191204
  Receipt Date: 20191204
  Transmission Date: 20200122
  Serious: Yes (Hospitalization)
  Sender: FDA-Public Use
  Company Number: None

PATIENT
  Sex: Female

DRUGS (12)
  1. ENVARSUS XR [Suspect]
     Active Substance: TACROLIMUS
     Indication: TRANSPLANT
     Dosage: ?          OTHER FREQUENCY:7 X 4, 6 X 3;?
     Route: 048
     Dates: start: 20190821
  2. MYCOPHENOLIC [Concomitant]
     Active Substance: MYCOPHENOLIC ACID
     Dates: start: 20190503
  3. ASPIRIN. [Concomitant]
     Active Substance: ASPIRIN
  4. NIFEDIPINE. [Concomitant]
     Active Substance: NIFEDIPINE
  5. CEPHALEXIN. [Concomitant]
     Active Substance: CEPHALEXIN
  6. SODIUM BICARB [Concomitant]
     Active Substance: SODIUM BICARBONATE
  7. VALGANCICLOV [Concomitant]
  8. ENVARSUS XR [Suspect]
     Active Substance: TACROLIMUS
     Indication: TRANSPLANT
     Route: 048
     Dates: start: 20190821
  9. LABETALOL [Concomitant]
     Active Substance: LABETALOL\LABETALOL HYDROCHLORIDE
  10. VITAMIN B12 [Concomitant]
     Active Substance: CYANOCOBALAMIN
  11. BUMETANIDE. [Concomitant]
     Active Substance: BUMETANIDE
  12. VITAMIN D3 [Concomitant]
     Active Substance: CHOLECALCIFEROL

REACTIONS (1)
  - Thrombosis [None]
